FAERS Safety Report 12875643 (Version 2)
Quarter: 2016Q4

REPORT INFORMATION
  Report Type: Report from Study
  Country: US (occurrence: US)
  Receive Date: 20161024
  Receipt Date: 20161108
  Transmission Date: 20170207
  Serious: No
  Sender: FDA-Public Use
  Company Number: US-ASTRAZENECA-2016SF08822

PATIENT
  Age: 58 Year
  Sex: Female
  Weight: 67.1 kg

DRUGS (1)
  1. SYMBICORT [Suspect]
     Active Substance: BUDESONIDE\FORMOTEROL FUMARATE DIHYDRATE
     Dosage: 160/4.5 MCG,2 PUFFS 1 TO 2 TIMES A DAY
     Route: 055
     Dates: start: 2013

REACTIONS (3)
  - Off label use [Not Recovered/Not Resolved]
  - Arthropathy [Unknown]
  - Gait disturbance [Unknown]

NARRATIVE: CASE EVENT DATE: 2013
